FAERS Safety Report 6624786-0 (Version None)
Quarter: 2010Q1

REPORT INFORMATION
  Report Type: 
  Country: None (occurrence: None)
  Receive Date: 20100310
  Receipt Date: 20100303
  Transmission Date: 20100710
  Serious: Yes (Other)
  Sender: FDA-Public Use
  Company Number: JP-SANOFI-AVENTIS-2010SA010984

PATIENT
  Sex: Male

DRUGS (6)
  1. PLAVIX [Suspect]
     Indication: ACUTE CORONARY SYNDROME
  2. PLAVIX [Suspect]
     Indication: PERCUTANEOUS CORONARY INTERVENTION
  3. PLAVIX [Suspect]
     Indication: STENT PLACEMENT
  4. ASPIRIN [Concomitant]
     Indication: ACUTE CORONARY SYNDROME
  5. ASPIRIN [Concomitant]
     Indication: PERCUTANEOUS CORONARY INTERVENTION
  6. ASPIRIN [Concomitant]
     Indication: STENT PLACEMENT

REACTIONS (2)
  - ANEURYSM RUPTURED [None]
  - SUBARACHNOID HAEMORRHAGE [None]
